FAERS Safety Report 9260081 (Version 1)
Quarter: 2013Q2

REPORT INFORMATION
  Report Type: Spontaneous
  Country: JP (occurrence: JP)
  Receive Date: 20130429
  Receipt Date: 20130429
  Transmission Date: 20140414
  Serious: Yes (Life-Threatening, Hospitalization)
  Sender: FDA-Public Use
  Company Number: JP-JNJFOC-20130111931

PATIENT
  Age: 50 Year
  Sex: Female
  Weight: 44 kg

DRUGS (9)
  1. REMICADE [Suspect]
     Indication: CROHN^S DISEASE
     Route: 042
     Dates: start: 20121102
  2. REMICADE [Suspect]
     Indication: CROHN^S DISEASE
     Route: 042
     Dates: start: 20120727
  3. REMICADE [Suspect]
     Indication: CROHN^S DISEASE
     Route: 042
     Dates: start: 20120810
  4. REMICADE [Suspect]
     Indication: CROHN^S DISEASE
     Route: 042
     Dates: start: 20120907
  5. PENTASA [Concomitant]
     Indication: CROHN^S DISEASE
     Route: 048
     Dates: start: 20100726, end: 20121115
  6. BIOFERMIN [Concomitant]
     Indication: CROHN^S DISEASE
     Route: 048
     Dates: start: 20120227, end: 20121115
  7. ELENTAL [Concomitant]
     Indication: CROHN^S DISEASE
     Route: 048
     Dates: start: 20110711, end: 20121115
  8. ZYRTEC [Concomitant]
     Indication: RHINITIS ALLERGIC
     Route: 048
     Dates: start: 20120907, end: 20121115
  9. CRAVIT [Concomitant]
     Indication: C-REACTIVE PROTEIN INCREASED
     Route: 048
     Dates: start: 20121102, end: 20121110

REACTIONS (3)
  - Interstitial lung disease [Recovered/Resolved]
  - Muscle haemorrhage [Unknown]
  - Pneumothorax [Recovering/Resolving]
